FAERS Safety Report 15080578 (Version 1)
Quarter: 2018Q3

REPORT INFORMATION
  Report Type: Spontaneous
  Country: FI (occurrence: FI)
  Receive Date: 20180628
  Receipt Date: 20180628
  Transmission Date: 20181010
  Serious: Yes (Congenital Anomaly, Other)
  Sender: FDA-Public Use
  Company Number: FI-TEVA-2018-FI-911977

PATIENT
  Sex: Male

DRUGS (8)
  1. OXAMIN 15 MG [Suspect]
     Active Substance: OXAZEPAM
     Route: 064
  2. KETIPINOR [Concomitant]
     Active Substance: QUETIAPINE FUMARATE
     Route: 064
  3. TENOX [Concomitant]
     Route: 064
  4. OPAMOX 15 MG [Concomitant]
     Route: 064
  5. SEROQUEL [Concomitant]
     Active Substance: QUETIAPINE FUMARATE
     Route: 064
  6. EMGESAN 250 MG TABLETS [Concomitant]
     Route: 064
  7. OBSIDAN 100 MG CAPSULE [Concomitant]
     Route: 064
  8. PANADOL FORTE 1 G TABLETS [Concomitant]
     Route: 064

REACTIONS (9)
  - Polydactyly [Not Recovered/Not Resolved]
  - Heart disease congenital [Not Recovered/Not Resolved]
  - Poor feeding infant [Unknown]
  - Premature baby [Unknown]
  - Plagiocephaly [Not Recovered/Not Resolved]
  - Live birth [Unknown]
  - Foetal exposure during pregnancy [Unknown]
  - Congenital intestinal malformation [Not Recovered/Not Resolved]
  - Congenital renal disorder [Not Recovered/Not Resolved]

NARRATIVE: CASE EVENT DATE: 20171106
